FAERS Safety Report 13579289 (Version 2)
Quarter: 2017Q3

REPORT INFORMATION
  Report Type: Spontaneous
  Country: JP (occurrence: JP)
  Receive Date: 20170525
  Receipt Date: 20170829
  Transmission Date: 20171127
  Serious: Yes (Other)
  Sender: FDA-Public Use
  Company Number: PHJP2017JP016878

PATIENT
  Sex: Female

DRUGS (1)
  1. VOTRIENT [Suspect]
     Active Substance: PAZOPANIB HYDROCHLORIDE
     Indication: RENAL CELL CARCINOMA
     Dosage: 800 MG, QD
     Route: 048
     Dates: start: 201605, end: 201705

REACTIONS (5)
  - Proteinuria [Recovering/Resolving]
  - Ascites [Unknown]
  - Nephrotic syndrome [Recovering/Resolving]
  - Pleural effusion [Unknown]
  - Respiratory disorder [Unknown]

NARRATIVE: CASE EVENT DATE: 201705
